FAERS Safety Report 19118612 (Version 1)
Quarter: 2021Q2

REPORT INFORMATION
  Report Type: Spontaneous
  Country: US (occurrence: US)
  Receive Date: 20210409
  Receipt Date: 20210409
  Transmission Date: 20210717
  Serious: No
  Sender: FDA-Public Use
  Company Number: US-ELI_LILLY_AND_COMPANY-US202104004216

PATIENT
  Age: 67 Year
  Sex: Female

DRUGS (3)
  1. MELATONIN [Concomitant]
     Active Substance: MELATONIN
     Indication: GROWTH HORMONE DEFICIENCY
     Dosage: 20 MG, EACH EVENING
     Route: 065
     Dates: start: 202011
  2. HUMATROPE [Suspect]
     Active Substance: SOMATROPIN
     Indication: GROWTH HORMONE DEFICIENCY
     Dosage: 0.3 MG, TID
     Route: 065
     Dates: start: 20210306
  3. HUMATROPE [Suspect]
     Active Substance: SOMATROPIN
     Dosage: 0.3 MG, TID
     Route: 065
     Dates: start: 20210306

REACTIONS (2)
  - Insulin-like growth factor decreased [Unknown]
  - Wrong technique in product usage process [Unknown]

NARRATIVE: CASE EVENT DATE: 20210322
